FAERS Safety Report 10328919 (Version 2)
Quarter: 2014Q3

REPORT INFORMATION
  Report Type: Report from Study
  Country: FR (occurrence: FR)
  Receive Date: 20140721
  Receipt Date: 20140721
  Transmission Date: 20150326
  Serious: Yes (Hospitalization)
  Sender: FDA-Public Use
  Company Number: FR-VERTEX PHARMACEUTICALS (CANADA)-AE-2011-000757

PATIENT
  Age: 61 Year
  Sex: Female
  Weight: 75 kg

DRUGS (12)
  1. COPEGUS [Suspect]
     Active Substance: RIBAVIRIN
     Dosage: 1200 MG, UNK
     Route: 048
     Dates: end: 20110731
  2. NEORECORMON [Concomitant]
     Active Substance: ERYTHROPOIETIN
     Indication: ANAEMIA
     Dosage: 30000 IU, QW
     Dates: start: 20110602
  3. DIOSMIN [Concomitant]
     Active Substance: DIOSMIN
     Indication: VARICOSE VEIN
     Dosage: 1 DF, QD
     Route: 048
     Dates: start: 2000
  4. VOGALENE [Concomitant]
     Active Substance: METOPIMAZINE
     Indication: NAUSEA
     Dosage: 7.5 MG, TID
     Dates: start: 20110620
  5. PAROXETINE [Concomitant]
     Active Substance: PAROXETINE\PAROXETINE HYDROCHLORIDE
     Indication: DEPRESSION
     Dosage: 20 MG, QD
     Dates: start: 20110607
  6. ALL OTHER THERAPEUTIC PRODUCT [Concomitant]
     Active Substance: UNSPECIFIED INGREDIENT
     Indication: DECREASED APPETITE
     Dosage: UNK, BID
     Dates: start: 20110608
  7. PEGASYS [Suspect]
     Active Substance: PEGINTERFERON ALFA-2A
     Indication: HEPATITIS C
     Dosage: 180 ?G, QW
     Route: 058
     Dates: start: 20110426, end: 20110731
  8. DAFALGAN [Concomitant]
     Active Substance: ACETAMINOPHEN
     Indication: INFLUENZA
     Dates: start: 2000
  9. METFORMINE [Concomitant]
     Active Substance: METFORMIN HYDROCHLORIDE
     Indication: DIABETES MELLITUS
     Dosage: 500 MG, BID
     Dates: start: 20110531, end: 20110801
  10. VX-950 (TELAPREVIR) [Suspect]
     Active Substance: TELAPREVIR
     Indication: HEPATITIS C
     Dosage: 750 MG, TID
     Route: 048
     Dates: start: 20110524, end: 20110731
  11. COPEGUS [Suspect]
     Active Substance: RIBAVIRIN
     Indication: HEPATITIS C
     Dosage: 1000 MG, QD
     Route: 048
     Dates: start: 20110426
  12. NEORECORMON [Concomitant]
     Active Substance: ERYTHROPOIETIN
     Dosage: 30000 IU, UNK
     Dates: start: 20110704

REACTIONS (3)
  - Anaemia [Recovering/Resolving]
  - Thrombocytopenia [Unknown]
  - Diabetes mellitus [Recovered/Resolved with Sequelae]

NARRATIVE: CASE EVENT DATE: 20110620
